FAERS Safety Report 5956639-5 (Version None)
Quarter: 2008Q4

REPORT INFORMATION
  Report Type: 
  Country: None (occurrence: None)
  Receive Date: 20081118
  Receipt Date: 20081107
  Transmission Date: 20090506
  Serious: Yes (Hospitalization)
  Sender: FDA-Public Use
  Company Number: US-MERCK-0811USA02295

PATIENT
  Age: 80 Year
  Sex: Female

DRUGS (1)
  1. FOSAMAX [Suspect]
     Route: 048

REACTIONS (4)
  - ABDOMINAL PAIN [None]
  - DIVERTICULITIS [None]
  - GASTRITIS EROSIVE [None]
  - OESOPHAGITIS [None]
